FAERS Safety Report 8573083-5 (Version None)
Quarter: 2012Q3

REPORT INFORMATION
  Report Type: 
  Country: None (occurrence: None)
  Receive Date: 20120806
  Receipt Date: 20120724
  Transmission Date: 20120928
  Serious: Yes (Hospitalization, Other)
  Sender: FDA-Public Use
  Company Number: US-ACTELION-A-US2012-68441

PATIENT
  Age: 74 Year
  Sex: Female
  Weight: 68.6 kg

DRUGS (14)
  1. PRAVASTATIN [Concomitant]
  2. PRILOSEC [Concomitant]
  3. ALENDRONATE SODIUM [Concomitant]
  4. SILDENAFIL [Concomitant]
  5. FUROSEMIDE [Concomitant]
  6. NORVASC [Concomitant]
  7. SYNTHROID [Concomitant]
  8. MAGNESIUM OXIDE [Concomitant]
  9. DIGOXIN [Concomitant]
  10. EPOPROSTENOL SODIUM [Suspect]
     Indication: PULMONARY ARTERIAL HYPERTENSION
     Dosage: 38.5 NG/KG, PER MIN
     Route: 042
     Dates: start: 20100708
  11. SPIRONOLACTONE [Concomitant]
  12. DILTIAZEM [Concomitant]
  13. COUMADIN [Suspect]
  14. VITAMIN D [Concomitant]

REACTIONS (15)
  - TRANSFUSION [None]
  - CHEST PAIN [None]
  - DYSPNOEA [None]
  - GASTROINTESTINAL HAEMORRHAGE [None]
  - PNEUMONIA [None]
  - INTERNATIONAL NORMALISED RATIO INCREASED [None]
  - DRUG LEVEL INCREASED [None]
  - OCCULT BLOOD POSITIVE [None]
  - WAIST CIRCUMFERENCE INCREASED [None]
  - ANAEMIA [None]
  - ASTHENIA [None]
  - HAEMATURIA [None]
  - BRAIN NATRIURETIC PEPTIDE INCREASED [None]
  - INCORRECT DOSE ADMINISTERED [None]
  - WHITE BLOOD CELL COUNT INCREASED [None]
